FAERS Safety Report 5139164-3 (Version None)
Quarter: 2006Q4

REPORT INFORMATION
  Report Type: 
  Country: None (occurrence: None)
  Receive Date: 20061030
  Receipt Date: 20061019
  Transmission Date: 20070319
  Serious: Yes (Hospitalization)
  Sender: FDA-Public Use
  Company Number: US-JNJFOC-20060900937

PATIENT
  Age: 25 Year
  Sex: Female

DRUGS (2)
  1. ORTHO EVRA [Suspect]
     Indication: MENSTRUATION IRREGULAR
     Route: 062
  2. ORTHO EVRA [Suspect]
     Indication: CONTRACEPTION
     Route: 062

REACTIONS (8)
  - DEEP VEIN THROMBOSIS [None]
  - DIZZINESS [None]
  - HEART RATE IRREGULAR [None]
  - MIGRAINE [None]
  - MUSCLE SPASMS [None]
  - PULMONARY EMBOLISM [None]
  - PYREXIA [None]
  - URINARY TRACT INFECTION [None]
